FAERS Safety Report 24239315 (Version 1)
Quarter: 2024Q3

REPORT INFORMATION
  Report Type: Spontaneous
  Country: US (occurrence: None)
  Receive Date: 20240822
  Receipt Date: 20240822
  Transmission Date: 20241017
  Serious: Yes (Life-Threatening, Disabling, Other)
  Sender: Public
  Company Number: None

PATIENT
  Age: 52 Year
  Sex: Female
  Weight: 36.45 kg

DRUGS (1)
  1. ORENCIA [Suspect]
     Active Substance: ABATACEPT
     Indication: Arthritis
     Dates: start: 20230102, end: 20240815

REACTIONS (15)
  - Generalised oedema [None]
  - Weight increased [None]
  - Epilepsy [None]
  - Exophthalmos [None]
  - Hyperhidrosis [None]
  - Joint swelling [None]
  - Sensory disturbance [None]
  - Muscle disorder [None]
  - Choking [None]
  - Vomiting [None]
  - Anosmia [None]
  - Skin discolouration [None]
  - Breast enlargement [None]
  - Alopecia [None]
  - Hair growth abnormal [None]

NARRATIVE: CASE EVENT DATE: 20240822
